FAERS Safety Report 16753869 (Version 1)
Quarter: 2019Q3

REPORT INFORMATION
  Report Type: Spontaneous
  Country: US (occurrence: US)
  Receive Date: 20190710
  Receipt Date: 20190710
  Transmission Date: 20191005
  Serious: No
  Sender: FDA-Public Use
  Company Number: None

PATIENT
  Age: 70 Year
  Sex: Female

DRUGS (1)
  1. REPATHA [Suspect]
     Active Substance: EVOLOCUMAB
     Indication: CORONARY ARTERY DISEASE
     Dosage: ?          OTHER FREQUENCY:UNKNOWN;?
     Route: 058
     Dates: start: 201906

REACTIONS (8)
  - Myalgia [None]
  - Influenza like illness [None]
  - Abdominal discomfort [None]
  - Musculoskeletal stiffness [None]
  - Nausea [None]
  - Dizziness [None]
  - Nasopharyngitis [None]
  - Feeling abnormal [None]

NARRATIVE: CASE EVENT DATE: 20190710
